FAERS Safety Report 8773987 (Version 1)
Quarter: 2012Q4

REPORT INFORMATION
  Report Type: 
  Country: US (occurrence: US)
  Receive Date: 20120908
  Receipt Date: 20120908
  Transmission Date: 20130627
  Serious: Yes (Disabling, Other)
  Sender: FDA-Public Use
  Company Number: US-009507513-1208USA011472

PATIENT

DRUGS (2)
  1. FOSAMAX [Suspect]
     Dosage: UNK
     Dates: start: 1998, end: 200601
  2. BONIVA [Suspect]
     Dosage: UNK
     Dates: start: 200601, end: 2010

REACTIONS (2)
  - Low turnover osteopathy [Unknown]
  - Femur fracture [Unknown]
